FAERS Safety Report 5591229-8 (Version None)
Quarter: 2008Q1

REPORT INFORMATION
  Report Type: 
  Country: None (occurrence: None)
  Receive Date: 20080110
  Receipt Date: 20080110
  Transmission Date: 20080703
  Serious: Yes (Other)
  Sender: FDA-Public Use
  Company Number: None

PATIENT
  Sex: Female
  Weight: 58.9676 kg

DRUGS (1)
  1. CYMBALTA [Suspect]
     Indication: DEPRESSION
     Dosage: 1 CAPSULE  DAILY  PO
     Route: 048
     Dates: start: 20070625

REACTIONS (5)
  - ANXIETY [None]
  - BURNING SENSATION [None]
  - PARANOIA [None]
  - PRURITUS [None]
  - SKIN NODULE [None]
